APPROVED DRUG PRODUCT: LORATADINE
Active Ingredient: LORATADINE
Strength: 10MG
Dosage Form/Route: TABLET;ORAL
Application: A219223 | Product #001
Applicant: MARKSANS PHARMA LTD
Approved: Nov 21, 2024 | RLD: No | RS: No | Type: OTC